APPROVED DRUG PRODUCT: VENOFER
Active Ingredient: IRON SUCROSE
Strength: EQ 50MG IRON/2.5ML (EQ 20MG IRON/ML)
Dosage Form/Route: INJECTABLE;INTRAVENOUS
Application: N021135 | Product #002 | TE Code: AB
Applicant: AMERICAN REGENT INC
Approved: Mar 20, 2005 | RLD: Yes | RS: No | Type: RX